FAERS Safety Report 15940561 (Version 1)
Quarter: 2019Q1

REPORT INFORMATION
  Report Type: Spontaneous
  Country: BE (occurrence: BE)
  Receive Date: 20190208
  Receipt Date: 20190208
  Transmission Date: 20190417
  Serious: Yes (Hospitalization, Other)
  Sender: FDA-Public Use
  Company Number: BE-ELI_LILLY_AND_COMPANY-BE201811001506

PATIENT
  Sex: Male

DRUGS (1)
  1. ZYPREXA [Suspect]
     Active Substance: OLANZAPINE
     Indication: ACUTE PSYCHOSIS
     Dosage: 10 MG, UNKNOWN
     Route: 065
     Dates: start: 201806, end: 2018

REACTIONS (6)
  - Decreased appetite [Unknown]
  - Anxiety [Unknown]
  - Thinking abnormal [Unknown]
  - Insomnia [Unknown]
  - Weight increased [Recovering/Resolving]
  - Acute psychosis [Unknown]

NARRATIVE: CASE EVENT DATE: 201806
